FAERS Safety Report 19459711 (Version 3)
Quarter: 2021Q3

REPORT INFORMATION
  Report Type: Report from Study
  Country: HN (occurrence: HN)
  Receive Date: 20210624
  Receipt Date: 20210723
  Transmission Date: 20211014
  Serious: Yes (Other)
  Sender: FDA-Public Use
  Company Number: NVSC2021HN141225

PATIENT
  Age: 72 Year
  Sex: Male
  Weight: 95.25 kg

DRUGS (2)
  1. DIOVAN [Suspect]
     Active Substance: VALSARTAN
     Indication: PRODUCT USED FOR UNKNOWN INDICATION
     Dosage: 1 DF, BID (320 MG) (APPROXIMATELY 1 YEAR AGO)
     Route: 048
  2. GALVUS MET [Suspect]
     Active Substance: METFORMIN HYDROCHLORIDE\VILDAGLIPTIN
     Indication: PRODUCT USED FOR UNKNOWN INDICATION
     Dosage: 1 DF (APPROXIMATELY 1 YEAR AGO)
     Route: 048

REACTIONS (2)
  - Deafness [Unknown]
  - Incorrect dose administered [Unknown]
